FAERS Safety Report 7008068-3 (Version None)
Quarter: 2010Q3

REPORT INFORMATION
  Report Type: 
  Country: None (occurrence: None)
  Receive Date: 20100922
  Receipt Date: 20100917
  Transmission Date: 20110219
  Serious: Yes (Other)
  Sender: FDA-Public Use
  Company Number: TR-ROXANE LABORATORIES, INC.-2010-RO-01244RO

PATIENT
  Age: 61 Year
  Sex: Female

DRUGS (5)
  1. LEVETIRACETAM [Suspect]
     Indication: TARDIVE DYSKINESIA
     Dosage: 1000 MG
  2. RISPERIDONE [Suspect]
     Indication: SCHIZOPHRENIA, PARANOID TYPE
     Dosage: 4 MG
     Dates: start: 20020101, end: 20030601
  3. RISPERIDONE [Suspect]
     Dosage: 2 MG
     Dates: start: 20030601, end: 20040601
  4. BIPERIDEN HYDROCHLORIDE TAB [Suspect]
     Indication: SCHIZOPHRENIA, PARANOID TYPE
     Dosage: 2 MG
  5. QUETIAPINE [Suspect]
     Indication: TARDIVE DYSKINESIA
     Dosage: 25 MG
     Dates: start: 20040601

REACTIONS (2)
  - PSYCHOTIC DISORDER [None]
  - TARDIVE DYSKINESIA [None]
